FAERS Safety Report 11654589 (Version 1)
Quarter: 2015Q4

REPORT INFORMATION
  Report Type: Spontaneous
  Country: US (occurrence: None)
  Receive Date: 20151022
  Receipt Date: 20151022
  Transmission Date: 20160304
  Serious: Yes (Other)
  Sender: FDA-Public Use
  Company Number: None

PATIENT
  Age: 52 Year
  Sex: Female
  Weight: 58.06 kg

DRUGS (1)
  1. FEMARA [Suspect]
     Active Substance: LETROZOLE
     Indication: BREAST CANCER
     Dosage: 1 PILL
     Route: 048

REACTIONS (23)
  - Hot flush [None]
  - Constipation [None]
  - Dehydration [None]
  - Bone pain [None]
  - Asthenia [None]
  - Headache [None]
  - Pain in extremity [None]
  - Cough [None]
  - Myalgia [None]
  - Arthralgia [None]
  - Dizziness [None]
  - Musculoskeletal stiffness [None]
  - Night sweats [None]
  - Insomnia [None]
  - Heart rate increased [None]
  - Visual impairment [None]
  - Somnolence [None]
  - Fatigue [None]
  - Paraesthesia [None]
  - Nausea [None]
  - Coordination abnormal [None]
  - Migraine [None]
  - Hypoaesthesia [None]
